FAERS Safety Report 6631354-3 (Version None)
Quarter: 2010Q1

REPORT INFORMATION
  Report Type: 
  Country: None (occurrence: None)
  Receive Date: 20100312
  Receipt Date: 20100305
  Transmission Date: 20100710
  Serious: No
  Sender: FDA-Public Use
  Company Number: JP-EISAI INC.-E2090-01006-SPO-JP

PATIENT
  Sex: Male

DRUGS (10)
  1. EXCEGRAN [Suspect]
     Dosage: 100 MG
     Route: 048
     Dates: start: 20090903, end: 20090912
  2. EXCEGRAN [Suspect]
     Dosage: 150 MG
     Route: 048
     Dates: start: 20090913, end: 20090917
  3. EXCEGRAN [Suspect]
     Dosage: 300 MG
     Route: 048
     Dates: start: 20090918, end: 20090928
  4. EXCEGRAN [Suspect]
     Dosage: 200 MG
     Route: 048
     Dates: start: 20090929, end: 20100212
  5. HALCION [Concomitant]
     Indication: INSOMNIA
     Dosage: 0.25 MG
     Route: 048
     Dates: start: 20090814, end: 20100214
  6. MINOCYCLINE HCL [Concomitant]
     Indication: PNEUMONIA
     Dosage: 200 MG
     Route: 048
     Dates: start: 20091229
  7. STARSIS [Concomitant]
     Indication: DIABETES MELLITUS
     Dosage: 90 MG
     Route: 048
     Dates: start: 20091229
  8. MUCOSTA [Concomitant]
     Indication: GASTRITIS
     Dosage: 300 MG
     Route: 048
     Dates: start: 20091213
  9. OMEPRAL [Concomitant]
     Indication: GASTRIC ULCER
     Dosage: 20 MG
     Route: 048
     Dates: start: 20091225
  10. WARFARIN SODIUM [Concomitant]
     Dosage: 0.5 MG
     Route: 048
     Dates: start: 20090821

REACTIONS (4)
  - INFLAMMATION [None]
  - PYREXIA [None]
  - STOMATITIS [None]
  - UVEITIS [None]
